FAERS Safety Report 6409119-7 (Version None)
Quarter: 2009Q4

REPORT INFORMATION
  Report Type: 
  Country: None (occurrence: None)
  Receive Date: 20091021
  Receipt Date: 20091006
  Transmission Date: 20100525
  Serious: Yes (Other)
  Sender: FDA-Public Use
  Company Number: PHHY2009BR42941

PATIENT
  Sex: Female

DRUGS (2)
  1. EXJADE [Suspect]
     Indication: THALASSAEMIA BETA
     Dosage: 250 MG, UNK
     Route: 048
     Dates: start: 20090401
  2. EXJADE [Suspect]
     Dosage: 375 MG (SPLITTING THE TABLET OF 500MG AND ALSO SPLITTING THE TABLET OF 250MG)

REACTIONS (5)
  - DRUG ADMINISTRATION ERROR [None]
  - MALAISE [None]
  - PHARYNGITIS [None]
  - PYREXIA [None]
  - SERUM FERRITIN INCREASED [None]
